FAERS Safety Report 7514318-7 (Version None)
Quarter: 2011Q2

REPORT INFORMATION
  Report Type: 
  Country: None (occurrence: None)
  Receive Date: 20110601
  Receipt Date: 20110523
  Transmission Date: 20111010
  Serious: No
  Sender: FDA-Public Use
  Company Number: US-BIOGENIDEC-2010BI033614

PATIENT
  Sex: Female

DRUGS (1)
  1. TYSABRI [Suspect]
     Indication: MULTIPLE SCLEROSIS
     Route: 042
     Dates: start: 20090402, end: 20100625

REACTIONS (5)
  - HYPOACUSIS [None]
  - DEAFNESS UNILATERAL [None]
  - ARNOLD-CHIARI MALFORMATION [None]
  - VISION BLURRED [None]
  - VISUAL ACUITY REDUCED [None]
